FAERS Safety Report 8161191-2 (Version None)
Quarter: 2012Q1

REPORT INFORMATION
  Report Type: 
  Country: None (occurrence: None)
  Receive Date: 20120224
  Receipt Date: 20120221
  Transmission Date: 20120608
  Serious: No
  Sender: FDA-Public Use
  Company Number: US-PFIZER INC-2012046101

PATIENT
  Sex: Female
  Weight: 61.224 kg

DRUGS (1)
  1. FLECTOR [Suspect]
     Indication: BACK PAIN
     Dosage: UNK
     Dates: start: 20111001, end: 20120214

REACTIONS (3)
  - RASH PRURITIC [None]
  - PURPURA [None]
  - PAIN [None]
